FAERS Safety Report 19688437 (Version 4)
Quarter: 2024Q1

REPORT INFORMATION
  Report Type: Spontaneous
  Country: US (occurrence: US)
  Receive Date: 20210811
  Receipt Date: 20240118
  Transmission Date: 20240410
  Serious: Yes (Other)
  Sender: FDA-Public Use
  Company Number: US-PFIZER INC-2020479652

PATIENT
  Age: 68 Year
  Sex: Female
  Weight: 84 kg

DRUGS (2)
  1. IBRANCE [Suspect]
     Active Substance: PALBOCICLIB
     Indication: Breast cancer female
     Dosage: 125 MG
  2. IBRANCE [Suspect]
     Active Substance: PALBOCICLIB
     Dosage: 100 MG 1 CAP, PO (PER ORAL), CAP, EVERY DAY, DAILY FOR 21 DAYS, THEN OFF FOR 7 DAYS
     Route: 048

REACTIONS (1)
  - White blood cell count decreased [Unknown]
